FAERS Safety Report 15609834 (Version 4)
Quarter: 2019Q1

REPORT INFORMATION
  Report Type: Spontaneous
  Country: CA (occurrence: CA)
  Receive Date: 20181113
  Receipt Date: 20190107
  Transmission Date: 20190417
  Serious: Yes (Other)
  Sender: FDA-Public Use
  Company Number: CA-CELLTRION INC.-2018CA019648

PATIENT

DRUGS (8)
  1. INFLECTRA [Suspect]
     Active Substance: INFLIXIMAB-DYYB
     Dosage: 3 MG/KG, EVERY 0,2,6 WEEKS AND EVERY 8 WEEKS
     Route: 042
     Dates: start: 20181116
  2. INFLECTRA [Suspect]
     Active Substance: INFLIXIMAB-DYYB
     Indication: RHEUMATOID ARTHRITIS
     Dosage: 3 MG/KG, EVERY 0,2,6 WEEKS AND EVERY 8 WEEKS
     Route: 042
     Dates: start: 20180420
  3. INFLECTRA [Suspect]
     Active Substance: INFLIXIMAB-DYYB
     Dosage: 3 MG/KG, EVERY 0,2,6 WEEKS AND EVERY 8 WEEKS
     Route: 042
     Dates: start: 20180725
  4. METHOTREXATE. [Concomitant]
     Active Substance: METHOTREXATE
     Dosage: UNK
     Dates: start: 201409
  5. INFLECTRA [Suspect]
     Active Substance: INFLIXIMAB-DYYB
     Dosage: 3 MG/KG, EVERY 0,2,6 WEEKS AND EVERY 8 WEEKS
     Route: 042
     Dates: start: 20180502
  6. ESTROGEL [Concomitant]
     Active Substance: ESTRADIOL
     Dosage: UNK
  7. INFLECTRA [Suspect]
     Active Substance: INFLIXIMAB-DYYB
     Dosage: 3 MG/KG, EVERY 0,2,6 WEEKS AND EVERY 8 WEEKS
     Route: 042
     Dates: start: 20180918
  8. ATASOL [PARACETAMOL] [Concomitant]
     Dosage: UNK

REACTIONS (18)
  - Drug effect incomplete [Recovering/Resolving]
  - Nausea [Not Recovered/Not Resolved]
  - Pharyngitis [Unknown]
  - Pulmonary mass [Unknown]
  - Abdominal pain [Recovered/Resolved]
  - Blood pressure fluctuation [Unknown]
  - Myalgia [Recovering/Resolving]
  - Fatigue [Not Recovered/Not Resolved]
  - Posture abnormal [Unknown]
  - Diarrhoea [Recovered/Resolved]
  - Abdominal discomfort [Unknown]
  - Oropharyngeal pain [Unknown]
  - Nasal congestion [Unknown]
  - Hot flush [Recovering/Resolving]
  - Psoriasis [Unknown]
  - Pyrexia [Recovered/Resolved]
  - Musculoskeletal chest pain [Recovered/Resolved]
  - Sinusitis [Unknown]

NARRATIVE: CASE EVENT DATE: 20180420
